FAERS Safety Report 20560133 (Version 1)
Quarter: 2022Q1

REPORT INFORMATION
  Report Type: Report from Study
  Country: IT (occurrence: IT)
  Receive Date: 20220307
  Receipt Date: 20220307
  Transmission Date: 20220423
  Serious: Yes (Other)
  Sender: FDA-Public Use
  Company Number: None

PATIENT
  Age: 18 Year
  Sex: Female

DRUGS (2)
  1. RISPERIDONE [Suspect]
     Active Substance: RISPERIDONE
     Indication: Product used for unknown indication
     Dosage: 3 MILLIGRAM, QD
     Dates: start: 20211006, end: 20211006
  2. CITALOPRAM [Suspect]
     Active Substance: CITALOPRAM HYDROBROMIDE
     Indication: Product used for unknown indication
     Dosage: 40 MILLIGRAM, QD
     Dates: start: 20211006, end: 20211006

REACTIONS (2)
  - Toxicity to various agents [Unknown]
  - Drug abuse [Unknown]

NARRATIVE: CASE EVENT DATE: 20211006
